FAERS Safety Report 9428426 (Version 1)
Quarter: 2013Q3

REPORT INFORMATION
  Report Type: Spontaneous
  Country: IT (occurrence: IT)
  Receive Date: 20130730
  Receipt Date: 20130730
  Transmission Date: 20140515
  Serious: Yes (Hospitalization)
  Sender: FDA-Public Use
  Company Number: IT-TEVA-420175ISR

PATIENT
  Age: 45 Year
  Sex: Female
  Weight: 63 kg

DRUGS (9)
  1. LORAZEPAM [Suspect]
     Dosage: 5  DAILY;
     Route: 048
     Dates: start: 20130101, end: 20130418
  2. TALOFEN 4G/100ML [Suspect]
     Dosage: 15 GTT DAILY;
     Route: 048
     Dates: start: 20130101, end: 20130418
  3. CARDIOASPIRIN 100MG [Concomitant]
     Dosage: GASTRO-RESISTANT TABLETS
     Dates: start: 20130101
  4. SEROQUEL 200MG [Concomitant]
     Dates: start: 20130101
  5. TRIATEC 2.5MG [Concomitant]
     Dates: start: 20130101
  6. ONCOCARBIDE 500MG [Concomitant]
     Dates: start: 20130101
  7. GEMFIBROZIL [Concomitant]
     Dates: start: 20130101
  8. BACLOFENE [Concomitant]
     Dates: start: 20130101
  9. OMEPRAZOLO [Concomitant]
     Dates: start: 20130101

REACTIONS (3)
  - Bradykinesia [Recovered/Resolved]
  - Dysphagia [Recovered/Resolved]
  - Bradyphrenia [Recovered/Resolved]
